FAERS Safety Report 9241572 (Version 1)
Quarter: 2013Q2

REPORT INFORMATION
  Report Type: Spontaneous
  Country: US (occurrence: US)
  Receive Date: 20130418
  Receipt Date: 20130418
  Transmission Date: 20140414
  Serious: Yes (Hospitalization)
  Sender: FDA-Public Use
  Company Number: US-SANOFI-AVENTIS-2013SA010049

PATIENT
  Age: 68 Year
  Sex: Female

DRUGS (1)
  1. LOVENOX [Suspect]
     Indication: PROPHYLAXIS
     Route: 065

REACTIONS (1)
  - Retroperitoneal haemorrhage [Unknown]
